FAERS Safety Report 5042113-X (Version None)
Quarter: 2006Q2

REPORT INFORMATION
  Report Type: 
  Country: None (occurrence: None)
  Receive Date: 20060627
  Receipt Date: 20060612
  Transmission Date: 20061013
  Serious: Yes (Hospitalization)
  Sender: FDA-Public Use
  Company Number: US-2006-006412

PATIENT
  Age: 62 Year
  Sex: Female

DRUGS (1)
  1. BETASERON [Suspect]
     Indication: SECONDARY PROGRESSIVE MULTIPLE SCLEROSIS
     Dosage: 8 MIU, EVERY 2D, SUBCUTANEOUS
     Route: 058
     Dates: start: 20050912, end: 20060201

REACTIONS (5)
  - CONDITION AGGRAVATED [None]
  - DYSPHAGIA [None]
  - INFECTION [None]
  - MULTIPLE SCLEROSIS [None]
  - PNEUMONIA [None]
